FAERS Safety Report 9230791 (Version 1)
Quarter: 2013Q2

REPORT INFORMATION
  Report Type: Spontaneous
  Country: FR (occurrence: FR)
  Receive Date: 20130415
  Receipt Date: 20130415
  Transmission Date: 20140414
  Serious: Yes (Hospitalization, Other)
  Sender: FDA-Public Use
  Company Number: FR-009507513-1304FRA004365

PATIENT
  Age: 46 Year
  Sex: Female

DRUGS (3)
  1. VARNOLINE CONTINU [Suspect]
     Indication: CONTRACEPTION
     Dosage: 1 DF, QD
     Route: 048
     Dates: start: 20111013, end: 20120724
  2. TRANXENE [Concomitant]
  3. LOXAPAC (LOXAPINE SUCCINATE) [Concomitant]

REACTIONS (3)
  - Dyspnoea [Recovered/Resolved]
  - Oxygen saturation decreased [Recovered/Resolved]
  - Pulmonary embolism [Recovered/Resolved]
